FAERS Safety Report 18072683 (Version 1)
Quarter: 2020Q3

REPORT INFORMATION
  Report Type: Spontaneous
  Country: US (occurrence: US)
  Receive Date: 20200727
  Receipt Date: 20200727
  Transmission Date: 20201103
  Serious: No
  Sender: FDA-Public Use
  Company Number: US-SA-2020SA187477

PATIENT

DRUGS (3)
  1. DUPIXENT [Suspect]
     Active Substance: DUPILUMAB
     Indication: DERMATITIS ATOPIC
     Dosage: UNK
     Dates: start: 202004
  2. PREDNISONE. [Concomitant]
     Active Substance: PREDNISONE
     Dosage: 30 MG, QD
     Dates: start: 202004
  3. PREDNISONE. [Concomitant]
     Active Substance: PREDNISONE
     Dosage: 10?20 MG, QD
     Dates: start: 2020

REACTIONS (2)
  - Injection site reaction [Unknown]
  - Injection site oedema [Unknown]

NARRATIVE: CASE EVENT DATE: 2020
